FAERS Safety Report 24015863 (Version 2)
Quarter: 2024Q3

REPORT INFORMATION
  Report Type: Spontaneous
  Country: US (occurrence: US)
  Receive Date: 20240626
  Receipt Date: 20240704
  Transmission Date: 20241017
  Serious: Yes (Hospitalization, Other)
  Sender: CIPLA
  Company Number: US-CIPLA LTD.-2024US06536

PATIENT

DRUGS (3)
  1. AMLODIPINE [Suspect]
     Active Substance: AMLODIPINE BESYLATE
     Dosage: 15 DOSAGE FORM, QD (FIFTEEN 10MG TABLETS)
     Route: 048
  2. LISINOPRIL [Suspect]
     Active Substance: LISINOPRIL
     Dosage: UNK, UNSPECIFIED AMOUNT
     Route: 048
  3. VALPROATE SODIUM [Suspect]
     Active Substance: VALPROATE SODIUM
     Dosage: UNK, UNSPECIFIED AMOUNT
     Route: 048

REACTIONS (6)
  - Suicide attempt [Unknown]
  - Intentional overdose [Unknown]
  - Lactic acidosis [Unknown]
  - Vasoplegia syndrome [Unknown]
  - Hyperglycaemia [Unknown]
  - Blood creatinine increased [Unknown]
